FAERS Safety Report 6221548-3 (Version None)
Quarter: 2009Q2

REPORT INFORMATION
  Report Type: 
  Country: None (occurrence: None)
  Receive Date: 20090610
  Receipt Date: 20090529
  Transmission Date: 20091009
  Serious: Yes (Hospitalization, Other)
  Sender: FDA-Public Use
  Company Number: US-ELI_LILLY_AND_COMPANY-US200905005972

PATIENT
  Sex: Female

DRUGS (3)
  1. HUMALOG [Suspect]
     Dosage: 8 U, UNK
  2. HUMALOG [Suspect]
     Dosage: 35 U, UNK
     Dates: start: 20090528, end: 20090528
  3. LANTUS [Concomitant]

REACTIONS (13)
  - BLOOD GLUCOSE DECREASED [None]
  - BLOOD GLUCOSE INCREASED [None]
  - CARDIAC DISORDER [None]
  - DIZZINESS [None]
  - DRUG DOSE OMISSION [None]
  - FEAR OF FALLING [None]
  - GLAUCOMA [None]
  - HOSPITALISATION [None]
  - INCORRECT DOSE ADMINISTERED [None]
  - MYOCARDIAL INFARCTION [None]
  - NERVOUSNESS [None]
  - TREMOR [None]
  - VISUAL ACUITY REDUCED [None]
